FAERS Safety Report 7545147-6 (Version None)
Quarter: 2011Q2

REPORT INFORMATION
  Report Type: 
  Country: None (occurrence: None)
  Receive Date: 20110525
  Receipt Date: 20110131
  Transmission Date: 20111010
  Serious: No
  Sender: FDA-Public Use
  Company Number: 322584

PATIENT
  Sex: Female

DRUGS (3)
  1. GLYBURIDE (GLIMECLAMIDE) [Concomitant]
  2. METFORMIN HCL [Concomitant]
  3. VICTOZA [Suspect]
     Indication: PRODUCT USED FOR UNKNOWN INDICATION
     Dosage: 1.2 MG, SUBCUTANEOUS
     Route: 058

REACTIONS (4)
  - DRUG INEFFECTIVE [None]
  - BLOOD GLUCOSE INCREASED [None]
  - NAUSEA [None]
  - DECREASED APPETITE [None]
